FAERS Safety Report 15150564 (Version 1)
Quarter: 2018Q3

REPORT INFORMATION
  Report Type: Spontaneous
  Country: US (occurrence: US)
  Receive Date: 20180619
  Receipt Date: 20180619
  Transmission Date: 20181010
  Serious: Yes (Hospitalization)
  Sender: FDA-Public Use
  Company Number: None

PATIENT
  Age: 72 Year
  Sex: Female

DRUGS (12)
  1. CALCIUM [Concomitant]
     Active Substance: CALCIUM
     Dates: start: 20091002
  2. ZOVIRAX [Concomitant]
     Active Substance: ACYCLOVIR
     Dates: start: 19000101
  3. SIMPONI [Suspect]
     Active Substance: GOLIMUMAB
     Indication: RHEUMATOID ARTHRITIS
     Route: 058
     Dates: start: 20150911
  4. SINGULAIR [Concomitant]
     Active Substance: MONTELUKAST SODIUM
     Dates: start: 20091002
  5. PROTONIX [Concomitant]
     Active Substance: PANTOPRAZOLE SODIUM
     Dates: start: 20171005
  6. LASIX [Concomitant]
     Active Substance: FUROSEMIDE
     Dates: start: 20171005
  7. FOLIC ACID. [Concomitant]
     Active Substance: FOLIC ACID
     Dates: start: 19000101
  8. VITA?PLUS E [Concomitant]
     Dates: start: 20091002
  9. BUTRANS [Concomitant]
     Active Substance: BUPRENORPHINE
     Dates: start: 20160616
  10. METHOTREXATE. [Concomitant]
     Active Substance: METHOTREXATE
     Dates: start: 20091002
  11. GNP VIT B?12 [Concomitant]
     Dates: start: 20091002
  12. PREDNISONE. [Concomitant]
     Active Substance: PREDNISONE
     Dates: start: 20180427

REACTIONS (1)
  - Cardiac failure congestive [None]

NARRATIVE: CASE EVENT DATE: 20180607
